FAERS Safety Report 6761255-1 (Version None)
Quarter: 2010Q2

REPORT INFORMATION
  Report Type: 
  Country: None (occurrence: None)
  Receive Date: 20100608
  Receipt Date: 20100602
  Transmission Date: 20101027
  Serious: Yes (Disabling)
  Sender: FDA-Public Use
  Company Number: JP-B.I. PHARMACEUTICALS,INC./RIDGEFIELD-2010-BP-01574NB

PATIENT
  Sex: Female
  Weight: 50 kg

DRUGS (6)
  1. BI-SIFROL TABLETS [Suspect]
     Indication: PARKINSON'S DISEASE
     Dosage: 3.5 MG
     Route: 048
     Dates: end: 20100123
  2. MENESIT [Suspect]
     Indication: PARKINSON'S DISEASE
     Dosage: 700 MG
     Route: 048
     Dates: start: 19960101
  3. COMTAN [Suspect]
     Dosage: 400 MG
     Route: 048
     Dates: start: 20100424
  4. SYMMETREL [Concomitant]
     Indication: PARKINSON'S DISEASE
     Dosage: 150 MG
     Route: 048
     Dates: start: 20041201
  5. APLACE [Concomitant]
     Indication: PROPHYLAXIS AGAINST GASTROINTESTINAL ULCER
     Dosage: 300 MG
     Route: 048
     Dates: start: 20041201
  6. MAGLAX [Concomitant]
     Indication: CONSTIPATION
     Dosage: 600 MG
     Route: 048
     Dates: start: 20041201

REACTIONS (3)
  - DRUG TOXICITY [None]
  - DYSKINESIA [None]
  - POSTURE ABNORMAL [None]
